FAERS Safety Report 22839428 (Version 3)
Quarter: 2023Q4

REPORT INFORMATION
  Report Type: Spontaneous
  Country: US (occurrence: US)
  Receive Date: 20230818
  Receipt Date: 20231016
  Transmission Date: 20240109
  Serious: Yes (Hospitalization, Other)
  Sender: FDA-Public Use
  Company Number: US-Vifor (International) Inc.-VIT-2023-06083

PATIENT
  Age: 35 Year
  Sex: Male
  Weight: 76 kg

DRUGS (4)
  1. MIRCERA [Suspect]
     Active Substance: METHOXY POLYETHYLENE GLYCOL-EPOETIN BETA
     Indication: Anaemia
     Dosage: FIRST AND LAST DOSE
     Route: 042
     Dates: start: 20230807, end: 202308
  2. VENOFER [Suspect]
     Active Substance: IRON SUCROSE
     Indication: Iron deficiency
     Route: 040
  3. HEPARIN SODIUM, PORCINE [Concomitant]
     Active Substance: HEPARIN SODIUM
     Indication: Anticoagulant therapy
     Dosage: VIA INTRACATHETER ROUTE
  4. SODIUM CHLORIDE [Concomitant]
     Active Substance: SODIUM CHLORIDE
     Indication: Catheter management
     Dosage: VIA NTRACATHETER ROUTE

REACTIONS (5)
  - Seizure like phenomena [Recovered/Resolved]
  - Musculoskeletal stiffness [Recovered/Resolved]
  - Oculogyric crisis [Recovered/Resolved]
  - Unresponsive to stimuli [Recovered/Resolved]
  - Eye pain [Recovered/Resolved]

NARRATIVE: CASE EVENT DATE: 20230807
